FAERS Safety Report 20391123 (Version 6)
Quarter: 2025Q2

REPORT INFORMATION
  Report Type: Report from Study
  Country: CO (occurrence: CO)
  Receive Date: 20220128
  Receipt Date: 20250410
  Transmission Date: 20250717
  Serious: Yes (Other)
  Sender: TAKEDA
  Company Number: CO-TAKEDA-2021TUS050778

PATIENT
  Age: 33 Year
  Sex: Female
  Weight: 50 kg

DRUGS (1)
  1. VEDOLIZUMAB [Suspect]
     Active Substance: VEDOLIZUMAB
     Indication: Colitis ulcerative

REACTIONS (9)
  - Gestational diabetes [Unknown]
  - Salivary hypersecretion [Recovered/Resolved]
  - Somnolence [Recovered/Resolved]
  - Weight decreased [Unknown]
  - Pregnancy [Unknown]
  - Body height decreased [Unknown]
  - Haemoglobin decreased [Unknown]
  - Treatment noncompliance [Unknown]
  - Weight increased [Unknown]

NARRATIVE: CASE EVENT DATE: 20210731
